FAERS Safety Report 5011001-7 (Version None)
Quarter: 2006Q2

REPORT INFORMATION
  Report Type: 
  Country: None (occurrence: None)
  Receive Date: 20060523
  Receipt Date: 20060523
  Transmission Date: 20061013
  Serious: No
  Sender: FDA-Public Use
  Company Number: None

PATIENT
  Sex: Male
  Weight: 93.8946 kg

DRUGS (8)
  1. DYAZIDE [Suspect]
     Indication: HYPERTENSION
     Dosage: 25/37.5 MG Q DAY PO
     Route: 048
     Dates: start: 20030505, end: 20060215
  2. AUGMENTIN '125' [Concomitant]
  3. ASPIRIN [Concomitant]
  4. VIODIN [Concomitant]
  5. LACTOBACILLUS [Concomitant]
  6. LISINOPRIL [Concomitant]
  7. METOPROLOL [Concomitant]
  8. NITROGLYCERIN [Concomitant]

REACTIONS (1)
  - PANCREATITIS [None]
